FAERS Safety Report 13423936 (Version 1)
Quarter: 2017Q2

REPORT INFORMATION
  Report Type: Spontaneous
  Country: CN (occurrence: CN)
  Receive Date: 20170410
  Receipt Date: 20170410
  Transmission Date: 20170830
  Serious: Yes (Hospitalization, Other)
  Sender: FDA-Public Use
  Company Number: CN-BAYER-2017-061884

PATIENT
  Age: 61 Year
  Sex: Female
  Weight: 45 kg

DRUGS (1)
  1. AVELOX [Suspect]
     Active Substance: MOXIFLOXACIN HYDROCHLORIDE
     Indication: LUNG INFECTION
     Dosage: 250 ML, QD
     Route: 041
     Dates: start: 20161231, end: 20170103

REACTIONS (3)
  - Haemorrhage subcutaneous [Recovering/Resolving]
  - Rash [Recovering/Resolving]
  - Coagulopathy [Recovering/Resolving]

NARRATIVE: CASE EVENT DATE: 20170103
